FAERS Safety Report 11325243 (Version 2)
Quarter: 2015Q3

REPORT INFORMATION
  Report Type: Report from Study
  Country: US (occurrence: US)
  Receive Date: 20150730
  Receipt Date: 20150904
  Transmission Date: 20151125
  Serious: Yes (Other)
  Sender: FDA-Public Use
  Company Number: US-ABBVIE-15P-163-1433154-00

PATIENT
  Age: 34 Year
  Sex: Female

DRUGS (2)
  1. LUPRON DEPOT [Suspect]
     Active Substance: LEUPROLIDE ACETATE
     Route: 058
     Dates: end: 2013
  2. LUPRON DEPOT [Suspect]
     Active Substance: LEUPROLIDE ACETATE
     Indication: UTERINE LEIOMYOMA
     Route: 030
     Dates: start: 2012

REACTIONS (5)
  - Vaginal haemorrhage [Not Recovered/Not Resolved]
  - Endometriosis [Not Recovered/Not Resolved]
  - Hot flush [Recovered/Resolved]
  - Mood swings [Recovered/Resolved]
  - Ovarian adhesion [Recovering/Resolving]

NARRATIVE: CASE EVENT DATE: 2012
